FAERS Safety Report 6509795-4 (Version None)
Quarter: 2009Q4

REPORT INFORMATION
  Report Type: 
  Country: None (occurrence: None)
  Receive Date: 20091222
  Receipt Date: 20091210
  Transmission Date: 20100525
  Serious: Yes (Hospitalization, Other)
  Sender: FDA-Public Use
  Company Number: US-AMGEN-QUU379726

PATIENT
  Sex: Female

DRUGS (3)
  1. ENBREL [Suspect]
     Indication: RHEUMATOID ARTHRITIS
     Route: 058
     Dates: start: 19990901
  2. METHOTREXATE [Concomitant]
  3. REMICADE [Concomitant]

REACTIONS (9)
  - ABDOMINAL DISTENSION [None]
  - ARTHRALGIA [None]
  - DRUG INEFFECTIVE [None]
  - FALL [None]
  - INJECTION SITE PAIN [None]
  - INJECTION SITE PRURITUS [None]
  - SWELLING [None]
  - TRISMUS [None]
  - X-RAY LIMB ABNORMAL [None]
